FAERS Safety Report 9696037 (Version 2)
Quarter: 2013Q4

REPORT INFORMATION
  Report Type: Spontaneous
  Country: US (occurrence: US)
  Receive Date: 20131119
  Receipt Date: 20131127
  Transmission Date: 20140711
  Serious: Yes (Other)
  Sender: FDA-Public Use
  Company Number: CHPA2013US017252

PATIENT
  Age: 60 Year
  Sex: Female

DRUGS (5)
  1. VOLTAREN GEL [Suspect]
     Indication: OFF LABEL USE
     Dosage: QUARTER SIZE, PRN
     Route: 061
     Dates: start: 2009
  2. VOLTAREN GEL [Suspect]
     Dosage: QUARTER SIZE, BID
     Route: 061
     Dates: start: 2009
  3. HYDROCODONE/ACETAMINOPHEN          /00607101/ [Concomitant]
     Dosage: UNK, Q6H
     Route: 065
  4. CORTISONE [Concomitant]
     Indication: BACK PAIN
     Dosage: UNK UNK
     Route: 065
     Dates: start: 2009
  5. SIMVASTATIN [Concomitant]
     Dosage: 1000MG, QHS
     Route: 065

REACTIONS (5)
  - Depression [Not Recovered/Not Resolved]
  - Drug administered at inappropriate site [Unknown]
  - Wrong technique in drug usage process [Unknown]
  - Expired drug administered [Unknown]
  - Drug ineffective for unapproved indication [Unknown]
